FAERS Safety Report 16685470 (Version 1)
Quarter: 2019Q3

REPORT INFORMATION
  Report Type: Spontaneous
  Country: US (occurrence: US)
  Receive Date: 20190809
  Receipt Date: 20190809
  Transmission Date: 20191004
  Serious: No
  Sender: FDA-Public Use
  Company Number: US-SA-2019SA211643

PATIENT
  Sex: Male

DRUGS (2)
  1. LEVOCETIRIZINE [Concomitant]
     Active Substance: LEVOCETIRIZINE
     Indication: HYPERSENSITIVITY
  2. DUPIXENT [Suspect]
     Active Substance: DUPILUMAB
     Indication: DERMATITIS ALLERGIC
     Dosage: 300 MG, QOW
     Route: 058
     Dates: start: 20190607

REACTIONS (4)
  - Fatigue [Unknown]
  - Back pain [Unknown]
  - Lethargy [Unknown]
  - Drug ineffective [Unknown]

NARRATIVE: CASE EVENT DATE: 2019
